FAERS Safety Report 23027498 (Version 1)
Quarter: 2023Q4

REPORT INFORMATION
  Report Type: Other
  Country: None (occurrence: US)
  Receive Date: 20231004
  Receipt Date: 20231004
  Transmission Date: 20240110
  Serious: Yes (Life-Threatening)
  Sender: FDA-Public Use
  Company Number: US-B.Braun Medical Inc.-2146642

PATIENT
  Age: 18 Year
  Sex: Female

DRUGS (1)
  1. ACETAMINOPHEN [Suspect]
     Active Substance: ACETAMINOPHEN

REACTIONS (6)
  - Intentional overdose [None]
  - Acute hepatic failure [None]
  - Shock [None]
  - Acute kidney injury [None]
  - Pancreatitis [None]
  - Pneumonia [None]
